FAERS Safety Report 9018538 (Version 2)
Quarter: 2013Q1

REPORT INFORMATION
  Report Type: Spontaneous
  Country: US (occurrence: US)
  Receive Date: 20130118
  Receipt Date: 20130227
  Transmission Date: 20140127
  Serious: No
  Sender: FDA-Public Use
  Company Number: US-PFIZER INC-2013018065

PATIENT
  Age: 62 Year
  Sex: Female

DRUGS (8)
  1. MORPHINE SULFATE [Suspect]
     Dosage: UNK
  2. DEMEROL [Suspect]
     Dosage: UNK
  3. CODEINE [Suspect]
     Dosage: UNK
  4. OXYCONTIN [Suspect]
     Dosage: UNK
  5. METHADONE [Suspect]
     Dosage: UNK
  6. ZOCOR [Suspect]
     Dosage: UNK
  7. PERCOCET [Suspect]
     Dosage: UNK
  8. VIOXX [Suspect]
     Dosage: UNK

REACTIONS (1)
  - Drug hypersensitivity [Unknown]
